FAERS Safety Report 15695652 (Version 1)
Quarter: 2018Q4

REPORT INFORMATION
  Report Type: Spontaneous
  Country: IT (occurrence: IT)
  Receive Date: 20181206
  Receipt Date: 20181206
  Transmission Date: 20190205
  Serious: Yes (Death)
  Sender: FDA-Public Use
  Company Number: IT-TEVA-2018-IT-982378

PATIENT
  Age: 62 Year
  Sex: Female

DRUGS (3)
  1. ADALIMUMAB [Suspect]
     Active Substance: ADALIMUMAB
     Indication: RHEUMATOID ARTHRITIS
     Route: 058
     Dates: start: 20051114, end: 20070313
  2. METHOTREXATE. [Suspect]
     Active Substance: METHOTREXATE
     Indication: RHEUMATOID ARTHRITIS
     Route: 030
     Dates: start: 20051114, end: 20070313
  3. DELTACORTENE [Suspect]
     Active Substance: PREDNISONE
     Indication: RHEUMATOID ARTHRITIS
     Route: 065
     Dates: start: 20051114, end: 20070503

REACTIONS (3)
  - Pneumocystis jirovecii pneumonia [Fatal]
  - Hyperpyrexia [Fatal]
  - Cough [Fatal]

NARRATIVE: CASE EVENT DATE: 20070313
